FAERS Safety Report 9168646 (Version 1)
Quarter: 2013Q1

REPORT INFORMATION
  Report Type: Report from Study
  Country: AU (occurrence: AU)
  Receive Date: 20130318
  Receipt Date: 20130318
  Transmission Date: 20140127
  Serious: Yes (Life-Threatening, Hospitalization, Other)
  Sender: FDA-Public Use
  Company Number: AU-ASTRAZENECA-2013SE17131

PATIENT
  Age: 0 Day
  Sex: Female
  Weight: 3.3 kg

DRUGS (9)
  1. SEROQUEL XR [Suspect]
     Indication: PSYCHOTIC DISORDER
     Dosage: 100-350 MG/DAY
     Route: 064
  2. AVANZA [Suspect]
     Indication: ANTIDEPRESSANT THERAPY
     Route: 064
  3. ZOLOFT [Suspect]
     Indication: ANTIDEPRESSANT THERAPY
     Route: 064
  4. LAMOTRIGENE [Suspect]
     Indication: AFFECTIVE DISORDER
     Route: 064
  5. OLANZAPINE [Suspect]
     Indication: PSYCHOTIC DISORDER
     Dosage: STOPPED AT 25/40 WEEKS
     Route: 064
  6. OROXINE [Concomitant]
     Indication: THYROID HORMONE REPLACEMENT THERAPY
     Route: 064
  7. FOLIC ACID [Concomitant]
     Indication: VITAMIN SUPPLEMENTATION
     Route: 064
     Dates: end: 20120909
  8. FISH OIL [Concomitant]
     Indication: SUPPLEMENTATION THERAPY
     Route: 064
     Dates: end: 20120909
  9. MAGNESIUM POWDER [Concomitant]
     Indication: SUPPLEMENTATION THERAPY
     Route: 064

REACTIONS (3)
  - Neonatal aspiration [Recovered/Resolved]
  - Drug withdrawal syndrome neonatal [Recovered/Resolved]
  - Maternal drugs affecting foetus [None]
